FAERS Safety Report 13032706 (Version 1)
Quarter: 2016Q4

REPORT INFORMATION
  Report Type: Spontaneous
  Country: US (occurrence: US)
  Receive Date: 20161215
  Receipt Date: 20161215
  Transmission Date: 20170207
  Serious: No
  Sender: FDA-Public Use
  Company Number: US-PFIZER INC-2015393841

PATIENT
  Age: 70 Year
  Sex: Male

DRUGS (3)
  1. FENTANYL CITRATE. [Suspect]
     Active Substance: FENTANYL CITRATE
     Dosage: UNK
  2. OPANA [Suspect]
     Active Substance: OXYMORPHONE HYDROCHLORIDE
     Dosage: UNK
  3. BUTRANS [Suspect]
     Active Substance: BUPRENORPHINE
     Dosage: UNK

REACTIONS (2)
  - Feeling abnormal [Unknown]
  - Drug hypersensitivity [Unknown]
